FAERS Safety Report 8464848-9 (Version None)
Quarter: 2012Q2

REPORT INFORMATION
  Report Type: 
  Country: None (occurrence: None)
  Receive Date: 20120618
  Receipt Date: 20120531
  Transmission Date: 20120825
  Serious: Yes (Hospitalization)
  Sender: FDA-Public Use
  Company Number: FK201201527

PATIENT
  Age: 82 Year
  Sex: Female

DRUGS (6)
  1. NSAIDS (NSAID'S) [Suspect]
     Indication: PRODUCT USED FOR UNKNOWN INDICATION
  2. MEROPENEM [Concomitant]
  3. TIGECYCLINE [Concomitant]
  4. DIURETICS (DIURETICS) [Suspect]
     Indication: PRODUCT USED FOR UNKNOWN INDICATION
  5. RIFAMPICIN [Concomitant]
  6. VANCOMYCIN [Suspect]
     Indication: SOFT TISSUE INFECTION
     Dosage: 1G TWICE DAILY, INTRAVENOUS (NOT OTHERWISE SPECIFIED)
     Route: 042

REACTIONS (6)
  - RENAL FAILURE ACUTE [None]
  - HYPOTENSION [None]
  - DEPRESSED LEVEL OF CONSCIOUSNESS [None]
  - BRADYCARDIA [None]
  - HYPERKALAEMIA [None]
  - CONTINUOUS HAEMODIAFILTRATION [None]
